FAERS Safety Report 8057047-6 (Version None)
Quarter: 2012Q1

REPORT INFORMATION
  Report Type: 
  Country: None (occurrence: None)
  Receive Date: 20120119
  Receipt Date: 20110926
  Transmission Date: 20120608
  Serious: No
  Sender: FDA-Public Use
  Company Number: US-SANOFI-AVENTIS-2011SA064404

PATIENT
  Sex: Male

DRUGS (2)
  1. LASIX [Suspect]
     Route: 065
  2. SPIRONOLACTONE [Suspect]
     Route: 065

REACTIONS (4)
  - HERPES ZOSTER [None]
  - MALAISE [None]
  - INSOMNIA [None]
  - FATIGUE [None]
